FAERS Safety Report 9962206 (Version 2)
Quarter: 2014Q2

REPORT INFORMATION
  Report Type: Spontaneous
  Country: DE (occurrence: DE)
  Receive Date: 20140305
  Receipt Date: 20140417
  Transmission Date: 20141212
  Serious: Yes (Hospitalization, Other)
  Sender: FDA-Public Use
  Company Number: DE-INCYTE CORPORATION-2014IN000521

PATIENT
  Age: 76 Year
  Sex: Female

DRUGS (8)
  1. JAKAVI [Suspect]
     Indication: MYELOFIBROSIS
     Dosage: UNK UNK, UNK
  2. JAKAVI [Suspect]
     Dosage: 40 MG, DAILY
     Route: 048
     Dates: start: 20120111
  3. JAKAVI [Suspect]
     Dosage: 20 MG, DAILY
     Route: 048
     Dates: start: 20121009, end: 20130813
  4. EXJADE [Suspect]
     Indication: HAEMOSIDEROSIS
     Dosage: 250 TO 500 MG DAILY
  5. ACETYLSALICYLIC ACID [Concomitant]
  6. SIMVASTATIN [Concomitant]
  7. CANDESARTAN [Concomitant]
  8. GLURENORM [Concomitant]

REACTIONS (1)
  - Tuberculosis [Not Recovered/Not Resolved]
